FAERS Safety Report 5173432-4 (Version None)
Quarter: 2006Q4

REPORT INFORMATION
  Report Type: 
  Country: None (occurrence: None)
  Receive Date: 20061206
  Receipt Date: 20061121
  Transmission Date: 20070319
  Serious: Yes (Other)
  Sender: FDA-Public Use
  Company Number: 225783

PATIENT
  Sex: Female

DRUGS (6)
  1. HERCEPTIN [Suspect]
     Indication: BREAST CANCER
     Dosage: Q3W,
     Dates: start: 20051106, end: 20061031
  2. EFFEXOR XR [Concomitant]
  3. ADRIAMYCIN PFS [Concomitant]
  4. CYTOXAN [Concomitant]
  5. RADIATION (RADIATION THERAPY) [Concomitant]
  6. TAMOXIFEN CITRATE [Concomitant]

REACTIONS (6)
  - ARTHRALGIA [None]
  - DEMYELINATION [None]
  - LIMB DISCOMFORT [None]
  - OEDEMA PERIPHERAL [None]
  - PALPITATIONS [None]
  - SPEECH DISORDER [None]
